FAERS Safety Report 24301309 (Version 2)
Quarter: 2024Q3

REPORT INFORMATION
  Report Type: Spontaneous
  Country: US (occurrence: US)
  Receive Date: 20240910
  Receipt Date: 20240919
  Transmission Date: 20241017
  Serious: Yes (Other)
  Sender: ALKEM
  Company Number: US-ALKEM LABORATORIES LIMITED-US-ALKEM-2024-20689

PATIENT
  Age: 14 Year
  Sex: Female

DRUGS (3)
  1. ISONIAZID [Suspect]
     Active Substance: ISONIAZID
     Indication: Latent tuberculosis
     Dosage: 50 MILLIGRAM, QD
     Route: 065
  2. ISONIAZID [Suspect]
     Active Substance: ISONIAZID
     Dosage: 300 MILLIGRAM
     Route: 065
  3. PYRIDOXINE [Suspect]
     Active Substance: PYRIDOXINE
     Indication: Product used for unknown indication
     Dosage: 50 MILLIGRAM
     Route: 065

REACTIONS (4)
  - Hallucination, auditory [Unknown]
  - Suicidal ideation [Unknown]
  - Psychotic disorder [Unknown]
  - Overdose [Unknown]
